FAERS Safety Report 6386356-1 (Version None)
Quarter: 2009Q3

REPORT INFORMATION
  Report Type: 
  Country: None (occurrence: None)
  Receive Date: 20090930
  Receipt Date: 20090930
  Transmission Date: 20100115
  Serious: No
  Sender: FDA-Public Use
  Company Number: None

PATIENT
  Age: 65 Year
  Sex: Female
  Weight: 71.2147 kg

DRUGS (1)
  1. KAPIDEX [Suspect]
     Indication: GASTROOESOPHAGEAL REFLUX DISEASE
     Dosage: 1 A DAY 1 HR BEGORE 1ST MEA PO
     Route: 048
     Dates: start: 20090928, end: 20090928

REACTIONS (3)
  - CHEST PAIN [None]
  - FLATULENCE [None]
  - HYPERTENSION [None]
